FAERS Safety Report 24566600 (Version 1)
Quarter: 2024Q4

REPORT INFORMATION
  Report Type: Spontaneous
  Country: US (occurrence: None)
  Receive Date: 20241030
  Receipt Date: 20241030
  Transmission Date: 20250115
  Serious: No
  Sender: Public
  Company Number: None

PATIENT
  Weight: 88.9 kg

DRUGS (2)
  1. XELODA [Suspect]
     Active Substance: CAPECITABINE
  2. ELOXATIN [Suspect]
     Active Substance: OXALIPLATIN

REACTIONS (8)
  - Dyspnoea [None]
  - Wheezing [None]
  - Stridor [None]
  - Blood glucose increased [None]
  - Neutrophil count increased [None]
  - Drug hypersensitivity [None]
  - Paraesthesia [None]
  - Nasopharyngitis [None]

NARRATIVE: CASE EVENT DATE: 20241023
